FAERS Safety Report 6341608-6 (Version None)
Quarter: 2009Q3

REPORT INFORMATION
  Report Type: 
  Country: None (occurrence: None)
  Receive Date: 20090902
  Receipt Date: 20090902
  Transmission Date: 20100115
  Serious: No
  Sender: FDA-Public Use
  Company Number: None

PATIENT
  Age: 77 Year
  Sex: Female

DRUGS (1)
  1. FLECAINIDE ACETATE [Suspect]
     Dosage: 1 TABLET TWICE DAILY

REACTIONS (3)
  - ASTHENIA [None]
  - HEART RATE IRREGULAR [None]
  - PRODUCT SUBSTITUTION ISSUE [None]
